FAERS Safety Report 11952509 (Version 4)
Quarter: 2016Q1

REPORT INFORMATION
  Report Type: Report from Study
  Country: US (occurrence: US)
  Receive Date: 20160125
  Receipt Date: 20160311
  Transmission Date: 20160526
  Serious: Yes (Other)
  Sender: FDA-Public Use
  Company Number: US-CORCEPT THERAPEUTICS INC.-US-2015CRT000518

PATIENT

DRUGS (6)
  1. SERTRALINE [Concomitant]
     Active Substance: SERTRALINE HYDROCHLORIDE
     Indication: PRODUCT USED FOR UNKNOWN INDICATION
     Dosage: UNK
  2. KORLYM [Suspect]
     Active Substance: MIFEPRISTONE
     Indication: CUSHING^S SYNDROME
     Dosage: 1 DF, QD
     Route: 048
     Dates: start: 201504, end: 201505
  3. KORLYM [Suspect]
     Active Substance: MIFEPRISTONE
     Dosage: 1 TABLETS QD ALTERNATING WITH 2 TABLETS QD
     Route: 048
     Dates: start: 201505, end: 201510
  4. KORLYM [Suspect]
     Active Substance: MIFEPRISTONE
     Dosage: 2 TABLETS QD ALTERNATING WITH 3 TABLETS QD
     Route: 048
     Dates: start: 201510, end: 201601
  5. KORLYM [Suspect]
     Active Substance: MIFEPRISTONE
     Dosage: 1 TABLET ON 1 DAY, 2 TABLETS ON THE NEXT DAY
     Route: 048
     Dates: start: 201602, end: 20160224
  6. VALTREX [Concomitant]
     Active Substance: VALACYCLOVIR HYDROCHLORIDE
     Indication: PRODUCT USED FOR UNKNOWN INDICATION
     Dosage: UNK
     Dates: start: 201504

REACTIONS (11)
  - Nausea [Unknown]
  - Tooth injury [Unknown]
  - Fatigue [Recovering/Resolving]
  - Vaginal haemorrhage [Recovered/Resolved]
  - Tremor [Recovering/Resolving]
  - Bruxism [Unknown]
  - Snoring [Recovered/Resolved]
  - Nasopharyngitis [Recovered/Resolved]
  - Hyperhidrosis [Recovering/Resolving]
  - Upper respiratory tract congestion [Recovered/Resolved]
  - Hypersomnia [Recovering/Resolving]

NARRATIVE: CASE EVENT DATE: 2015
